FAERS Safety Report 16806119 (Version 2)
Quarter: 2019Q4

REPORT INFORMATION
  Report Type: Spontaneous
  Country: PT (occurrence: PT)
  Receive Date: 20190913
  Receipt Date: 20191017
  Transmission Date: 20200122
  Serious: Yes (Other)
  Sender: FDA-Public Use
  Company Number: PT-GUERBET-PT-20190016

PATIENT
  Age: 42 Year
  Sex: Female
  Weight: 49 kg

DRUGS (2)
  1. TELEBRIX GASTRO [Suspect]
     Active Substance: MEGLUMINE IOXITHALAMATE
     Indication: COMPUTERISED TOMOGRAM ABDOMEN
     Route: 048
     Dates: start: 20190722, end: 20190722
  2. OPTIRAY 320 [Suspect]
     Active Substance: IOVERSOL
     Indication: COMPUTERISED TOMOGRAM ABDOMEN
     Route: 042
     Dates: start: 20190722, end: 20190722

REACTIONS (2)
  - Rash maculo-papular [Recovered/Resolved]
  - Pruritus [Recovered/Resolved]

NARRATIVE: CASE EVENT DATE: 20190722
